FAERS Safety Report 5258566-8 (Version None)
Quarter: 2007Q1

REPORT INFORMATION
  Report Type: 
  Country: None (occurrence: None)
  Receive Date: 20070305
  Receipt Date: 20070222
  Transmission Date: 20070707
  Serious: Yes (Hospitalization)
  Sender: FDA-Public Use
  Company Number: 237103

PATIENT
  Age: 65 Year
  Sex: Male
  Weight: 79.7 kg

DRUGS (4)
  1. AVASTIN [Suspect]
     Indication: COLORECTAL CANCER METASTATIC
     Dosage: 425 MG, Q2W, INTRAVENOUS
     Route: 042
     Dates: start: 20060126
  2. CETUXIMAB(CETUXIMAB) [Suspect]
     Indication: COLORECTAL CANCER METASTATIC
     Dosage: 300 MG, 1/WEEK, INTRAVENOUS
     Route: 042
     Dates: start: 20060126
  3. FLUOROURACIL [Suspect]
     Indication: COLORECTAL CANCER METASTATIC
     Dosage: 5600 MG, Q2W, INTRAVENOUS
     Route: 042
     Dates: start: 20060126
  4. LEUCOVORIN CALCIUM [Suspect]
     Indication: COLORECTAL CANCER METASTATIC
     Dosage: 800 MG, Q2W, INTRAVENOUS
     Route: 042
     Dates: start: 20060126

REACTIONS (1)
  - PROCTALGIA [None]
